FAERS Safety Report 23113432 (Version 1)
Quarter: 2023Q4

REPORT INFORMATION
  Report Type: Other
  Country: CA (occurrence: CA)
  Receive Date: 20231027
  Receipt Date: 20231027
  Transmission Date: 20240110
  Serious: Yes (Hospitalization, Other)
  Sender: FDA-Public Use
  Company Number: CA-APOTEX-2023AP015815

PATIENT
  Age: 81 Year
  Sex: Female

DRUGS (1)
  1. ZOLEDRONIC ACID [Suspect]
     Active Substance: ZOLEDRONIC ACID
     Indication: Osteoporosis
     Dosage: UNK (EVERY 1 YEAR)
     Route: 065

REACTIONS (4)
  - Cerebrovascular accident [Recovering/Resolving]
  - Carotid artery disease [Recovering/Resolving]
  - Pneumonia [Recovering/Resolving]
  - Ulcer [Recovering/Resolving]
